FAERS Safety Report 12337355 (Version 1)
Quarter: 2016Q2

REPORT INFORMATION
  Report Type: Spontaneous
  Country: FR (occurrence: FR)
  Receive Date: 20160505
  Receipt Date: 20160505
  Transmission Date: 20160815
  Serious: Yes (Life-Threatening, Hospitalization, Other)
  Sender: FDA-Public Use
  Company Number: FR-PFIZER INC-2016237506

PATIENT
  Age: 26 Year
  Sex: Female
  Weight: 76 kg

DRUGS (13)
  1. THERALENE [Suspect]
     Active Substance: TRIMEPRAZINE
     Dosage: 1500 MG, SINGLE
     Route: 048
     Dates: start: 20150930, end: 20150930
  2. LYSANXIA [Concomitant]
     Active Substance: PRAZEPAM
     Dosage: 10 MG, 4X/DAY (IN THE MORNING, LUNCH TIME, IN THE EVENING AND AT BED TIME)
  3. DUPHALAC [Concomitant]
     Active Substance: LACTULOSE
     Dosage: UNK
  4. TERCIAN /00759301/ [Suspect]
     Active Substance: CYAMEMAZINE
     Dosage: 1200 MG, SINGLE
     Route: 048
     Dates: start: 20150930, end: 20150930
  5. CONTRAMAL [Concomitant]
     Active Substance: TRAMADOL HYDROCHLORIDE
     Dosage: 1 DF, 2X/DAY ( (IN THE MORNING AND IN THE EVENING)
  6. ALIMEMAZINE TARTRATE [Concomitant]
     Active Substance: TRIMEPRAZINE
     Dosage: 30 GTT, 1X/DAY (AT BED TIME)
  7. TOPALGIC [Concomitant]
     Active Substance: TRAMADOL
     Indication: FIBROMYALGIA
     Dosage: UNK
  8. DOLIPRANE [Concomitant]
     Active Substance: ACETAMINOPHEN
     Indication: FIBROMYALGIA
     Dosage: UNK
  9. CYMBALTA [Concomitant]
     Active Substance: DULOXETINE HYDROCHLORIDE
     Dosage: 120 MG, 1X/DAY (IN THE MORNING)
  10. XEROQUEL LP [Concomitant]
     Active Substance: QUETIAPINE FUMARATE
     Dosage: 300 MG, 1X/DAY (IN THE EVENING)
  11. XANAX [Suspect]
     Active Substance: ALPRAZOLAM
     Dosage: 15 MG, SINGLE
     Route: 048
     Dates: start: 20150930, end: 20150930
  12. LAROXYL [Suspect]
     Active Substance: AMITRIPTYLINE
     Dosage: UNK
     Route: 048
     Dates: start: 20150930, end: 20150930
  13. PARACETAMOL [Concomitant]
     Active Substance: ACETAMINOPHEN
     Dosage: UNK

REACTIONS (4)
  - Suicide attempt [Recovered/Resolved]
  - Coma [Recovered/Resolved]
  - Poisoning deliberate [Recovered/Resolved]
  - Intentional overdose [Recovered/Resolved]

NARRATIVE: CASE EVENT DATE: 20150930
